FAERS Safety Report 12100829 (Version 5)
Quarter: 2017Q2

REPORT INFORMATION
  Report Type: Report from Study
  Country: AR (occurrence: AR)
  Receive Date: 20160222
  Receipt Date: 20170613
  Transmission Date: 20170829
  Serious: Yes (Life-Threatening, Hospitalization)
  Sender: FDA-Public Use
  Company Number: PHHO2014AR017662

PATIENT
  Age: 24 Year
  Sex: Female
  Weight: 95 kg

DRUGS (2)
  1. DABRAFENIB [Suspect]
     Active Substance: DABRAFENIB
     Indication: MALIGNANT MELANOMA
     Dosage: UNK
     Route: 048
     Dates: start: 20140211, end: 20140225
  2. TRAMETINIB [Suspect]
     Active Substance: TRAMETINIB
     Indication: MALIGNANT MELANOMA
     Dosage: 2 MG, QD
     Route: 048
     Dates: start: 20140211, end: 20140225

REACTIONS (2)
  - Retinal detachment [Recovering/Resolving]
  - Uveitis [Recovered/Resolved]

NARRATIVE: CASE EVENT DATE: 20140311
